FAERS Safety Report 25494912 (Version 3)
Quarter: 2025Q3

REPORT INFORMATION
  Report Type: Report from Study
  Country: BR (occurrence: BR)
  Receive Date: 20250630
  Receipt Date: 20250918
  Transmission Date: 20251020
  Serious: Yes (Death, Hospitalization)
  Sender: BIOGEN
  Company Number: BR-BIOGEN-2025BI01311891

PATIENT
  Sex: Female
  Weight: 78 kg

DRUGS (2)
  1. SPINRAZA [Suspect]
     Active Substance: NUSINERSEN
     Indication: Spinal muscular atrophy
     Route: 050
     Dates: start: 20230904
  2. SPINRAZA [Suspect]
     Active Substance: NUSINERSEN
     Route: 050

REACTIONS (5)
  - Pneumonia [Fatal]
  - Pneumothorax [Fatal]
  - Gastrointestinal disorder [Unknown]
  - Scoliosis [Unknown]
  - Aspiration [Unknown]

NARRATIVE: CASE EVENT DATE: 20240101
